FAERS Safety Report 12945991 (Version 1)
Quarter: 2016Q4

REPORT INFORMATION
  Report Type: Spontaneous
  Country: US (occurrence: US)
  Receive Date: 20161115
  Receipt Date: 20161115
  Transmission Date: 20170207
  Serious: Yes (Other)
  Sender: FDA-Public Use
  Company Number: US-TEVA-710515USA

PATIENT
  Sex: Female

DRUGS (1)
  1. NUVIGIL [Suspect]
     Active Substance: ARMODAFINIL
     Indication: SLEEP DISORDER
     Dates: start: 2016

REACTIONS (6)
  - Facial bones fracture [Recovering/Resolving]
  - Somnolence [Recovering/Resolving]
  - Eye swelling [Recovering/Resolving]
  - Drug ineffective [Unknown]
  - Fall [Recovering/Resolving]
  - Adverse event [Recovering/Resolving]

NARRATIVE: CASE EVENT DATE: 2016
